FAERS Safety Report 7704396 (Version 8)
Quarter: 2015Q1

REPORT INFORMATION
  Report Type: Spontaneous
  Country: JP (occurrence: JP)
  Receive Date: 20101213
  Receipt Date: 20150114
  Transmission Date: 20150721
  Serious: Yes (Life-Threatening, Hospitalization)
  Sender: FDA-Public Use
  Company Number: PHHY2010JP82185

PATIENT

DRUGS (50)
  1. CLOZARIL [Suspect]
     Active Substance: CLOZAPINE
     Dosage: 600 MG, UNK
     Route: 048
     Dates: start: 20100317, end: 20100406
  2. CLOZARIL [Suspect]
     Active Substance: CLOZAPINE
     Dosage: 600 MG, UNK
     Route: 048
     Dates: start: 20100427, end: 20101223
  3. LIMAS [Suspect]
     Active Substance: LITHIUM CARBONATE
     Dosage: 600 MG, UNK
     Route: 048
     Dates: start: 20101008, end: 20101111
  4. LIMAS [Suspect]
     Active Substance: LITHIUM CARBONATE
     Dosage: 600 MG, UNK
     Route: 048
     Dates: start: 20110224, end: 20120519
  5. DEPAS [Concomitant]
     Active Substance: ETIZOLAM
     Indication: SCHIZOPHRENIA, DISORGANISED TYPE
     Dosage: 2 MG, UNK
     Route: 048
     Dates: start: 20100204, end: 20120204
  6. CONTOMIN [Concomitant]
     Active Substance: CHLORPROMAZINE
     Dosage: 350 MG
     Route: 048
     Dates: end: 20100303
  7. CLOZARIL [Suspect]
     Active Substance: CLOZAPINE
     Dosage: 500 MG, UNK
     Route: 048
     Dates: start: 20100407, end: 20100420
  8. LIMAS [Suspect]
     Active Substance: LITHIUM CARBONATE
     Dosage: 800 MG, UNK
     Route: 048
     Dates: start: 20100910, end: 20101007
  9. LIMAS [Suspect]
     Active Substance: LITHIUM CARBONATE
     Dosage: 400 MG, UNK
     Route: 048
     Dates: start: 20101224, end: 20120519
  10. LIMAS [Suspect]
     Active Substance: LITHIUM CARBONATE
     Dosage: 200 MG, UNK
     Route: 048
     Dates: start: 20110930, end: 20120204
  11. LAMICTAL [Concomitant]
     Active Substance: LAMOTRIGINE
     Dosage: 100 MG
     Route: 048
  12. CONTOMIN [Concomitant]
     Active Substance: CHLORPROMAZINE
     Indication: PRODUCT USED FOR UNKNOWN INDICATION
     Dosage: 1100 MG
     Route: 048
     Dates: start: 20100204
  13. CLOZARIL [Suspect]
     Active Substance: CLOZAPINE
     Indication: SCHIZOPHRENIA, DISORGANISED TYPE
     Dosage: 12.5 MG, UNK
     Route: 048
     Dates: start: 20100204, end: 20100204
  14. CLOZARIL [Suspect]
     Active Substance: CLOZAPINE
     Dosage: 150 MG, UNK
     Route: 048
     Dates: start: 20100217, end: 20100220
  15. CLOZARIL [Suspect]
     Active Substance: CLOZAPINE
     Dosage: 375 MG, UNK
     Route: 048
     Dates: start: 20111125
  16. SENNOSIDE [Concomitant]
     Active Substance: SENNOSIDES
     Dosage: 4 DF
     Route: 048
  17. AKINETON [Concomitant]
     Active Substance: BIPERIDEN HYDROCHLORIDE
     Indication: PROPHYLAXIS
     Dosage: 3 MG, UNK
     Route: 048
     Dates: start: 20100204
  18. CLOZARIL [Suspect]
     Active Substance: CLOZAPINE
     Dosage: 50 MG, UNK
     Route: 048
     Dates: start: 20100208, end: 20100210
  19. CLOZARIL [Suspect]
     Active Substance: CLOZAPINE
     Dosage: 500 MG, UNK
     Route: 048
     Dates: start: 20100311, end: 20100316
  20. CLOZARIL [Suspect]
     Active Substance: CLOZAPINE
     Dosage: 200 MG, UNK
     Route: 048
     Dates: start: 20101224, end: 20110216
  21. CLOZARIL [Suspect]
     Active Substance: CLOZAPINE
     Dosage: 300 MG, UNK
     Route: 048
     Dates: start: 20110610, end: 20110623
  22. LIMAS [Suspect]
     Active Substance: LITHIUM CARBONATE
     Dosage: 800 MG, UNK
     Route: 048
     Dates: start: 20110520, end: 20110919
  23. LIMAS [Suspect]
     Active Substance: LITHIUM CARBONATE
     Dosage: 400 MG, UNK
     Route: 048
     Dates: start: 20110920, end: 20110926
  24. MAGNESIUM OXIDE. [Concomitant]
     Active Substance: MAGNESIUM OXIDE
     Indication: CONSTIPATION
     Dosage: 1500 MG
     Route: 048
     Dates: start: 20100204
  25. CONTOMIN [Concomitant]
     Active Substance: CHLORPROMAZINE
     Dosage: 900 MG
     Route: 048
  26. CLOZARIL [Suspect]
     Active Substance: CLOZAPINE
     Dosage: 400 MG, UNK
     Route: 048
     Dates: start: 20110429, end: 20110609
  27. CLOZARIL [Suspect]
     Active Substance: CLOZAPINE
     Dosage: 300 MG, UNK
     Route: 048
     Dates: start: 20110930, end: 20111124
  28. CLOZARIL [Suspect]
     Active Substance: CLOZAPINE
     Dosage: 25 MG, UNK
     Route: 048
     Dates: start: 20100205, end: 20100207
  29. CLOZARIL [Suspect]
     Active Substance: CLOZAPINE
     Dosage: 125 MG, UNK
     Route: 048
     Dates: start: 20100215, end: 20100216
  30. CLOZARIL [Suspect]
     Active Substance: CLOZAPINE
     Dosage: 200 MG, UNK
     Route: 048
     Dates: start: 20100224, end: 20100228
  31. CLOZARIL [Suspect]
     Active Substance: CLOZAPINE
     Dosage: 300 MG, UNK
     Route: 048
     Dates: start: 20100301, end: 20100305
  32. LIMAS [Suspect]
     Active Substance: LITHIUM CARBONATE
     Indication: SCHIZOPHRENIA, DISORGANISED TYPE
     Dosage: 1000 MG, UNK
     Route: 048
     Dates: start: 20100204, end: 20101111
  33. CERCINE [Suspect]
     Active Substance: DIAZEPAM
     Dosage: 6 MG, UNK
     Route: 048
     Dates: start: 20110224, end: 20120311
  34. SENNOSIDE [Concomitant]
     Active Substance: SENNOSIDES
     Dosage: 5 DF
     Route: 048
     Dates: start: 20100305
  35. CONTOMIN [Concomitant]
     Active Substance: CHLORPROMAZINE
     Dosage: 700 MG
     Route: 048
  36. CLOZARIL [Suspect]
     Active Substance: CLOZAPINE
     Dosage: 100 MG, UNK
     Route: 048
     Dates: start: 20100213, end: 20100214
  37. CLOZARIL [Suspect]
     Active Substance: CLOZAPINE
     Dosage: 175 MG, UNK
     Route: 048
     Dates: start: 20100221, end: 20100223
  38. CLOZARIL [Suspect]
     Active Substance: CLOZAPINE
     Dosage: 400 MG, UNK
     Route: 048
     Dates: start: 20100306, end: 20100310
  39. CLOZARIL [Suspect]
     Active Substance: CLOZAPINE
     Dosage: 300 MG, UNK
     Route: 048
     Dates: start: 20110217, end: 20110428
  40. LIMAS [Suspect]
     Active Substance: LITHIUM CARBONATE
     Dosage: 200 MG, UNK
     Route: 048
     Dates: start: 20100910, end: 20110202
  41. LIMAS [Suspect]
     Active Substance: LITHIUM CARBONATE
     Dosage: 300 MG, UNK
     Route: 048
     Dates: start: 20110929, end: 20110929
  42. FLOMOX//CEFCAPENE PIVOXIL HYDROCHLORIDE [Concomitant]
     Active Substance: CEFCAPENE PIVOXIL HYDROCHLORIDE HYDRATE
     Indication: URINARY TRACT INFECTION
     Dosage: 300 MG
     Route: 048
     Dates: start: 20110716, end: 20110916
  43. CLOZARIL [Suspect]
     Active Substance: CLOZAPINE
     Dosage: 75 MG, UNK
     Route: 048
     Dates: start: 20100211, end: 20100212
  44. CLOZARIL [Suspect]
     Active Substance: CLOZAPINE
     Dosage: 400 MG, UNK
     Route: 048
     Dates: start: 20100421, end: 20100426
  45. CLOZARIL [Suspect]
     Active Substance: CLOZAPINE
     Dosage: 400 MG, UNK
     Route: 048
     Dates: start: 20110624, end: 20110929
  46. CERCINE [Suspect]
     Active Substance: DIAZEPAM
     Indication: SCHIZOPHRENIA, DISORGANISED TYPE
     Dosage: 15 MG, UNK
     Route: 048
     Dates: start: 20100805, end: 20110223
  47. SENNOSIDE [Concomitant]
     Active Substance: SENNOSIDES
     Indication: CONSTIPATION
     Dosage: 72 MG
     Route: 048
     Dates: start: 20100204, end: 20100304
  48. LAMICTAL [Concomitant]
     Active Substance: LAMOTRIGINE
     Indication: SCHIZOPHRENIA, DISORGANISED TYPE
     Dosage: 200 MG
     Route: 048
     Dates: start: 20100204
  49. LAMICTAL [Concomitant]
     Active Substance: LAMOTRIGINE
     Dosage: 150 MG
     Route: 048
     Dates: end: 20120204
  50. PANTOSIN [Concomitant]
     Active Substance: PANTETHINE
     Indication: CONSTIPATION
     Dosage: 600 MG
     Route: 065
     Dates: start: 20100204, end: 20100228

REACTIONS (5)
  - Spinal compression fracture [Unknown]
  - Seizure [Recovered/Resolved]
  - Suicide attempt [Recovered/Resolved]
  - Bladder dysfunction [Recovered/Resolved]
  - Salivary hypersecretion [Unknown]

NARRATIVE: CASE EVENT DATE: 20100301
